FAERS Safety Report 9414964 (Version 1)
Quarter: 2013Q3

REPORT INFORMATION
  Report Type: Spontaneous
  Country: BR (occurrence: BR)
  Receive Date: 20130723
  Receipt Date: 20130723
  Transmission Date: 20140515
  Serious: Yes (Other)
  Sender: FDA-Public Use
  Company Number: BR-AMGEN-BRASP2013050582

PATIENT
  Age: 49 Year
  Sex: Female
  Weight: 69 kg

DRUGS (4)
  1. ENBREL [Suspect]
     Indication: RHEUMATOID ARTHRITIS
     Dosage: 50 MG, ONCE WEEKLY
     Route: 058
     Dates: start: 201307
  2. LOSARTAN [Concomitant]
     Dosage: 50 MG (1 TABLET), TWICE DAILY
     Route: 048
  3. METFORMIN [Concomitant]
     Dosage: 850 MG (1 TABLET), THREE TIMES DAILY
     Route: 048
  4. PURAN T4 [Concomitant]
     Dosage: 100 MG (1 TABLET), ONCE DAILY
     Route: 048

REACTIONS (2)
  - Hypertension [Not Recovered/Not Resolved]
  - Malaise [Not Recovered/Not Resolved]
